FAERS Safety Report 4984328-2 (Version None)
Quarter: 2006Q2

REPORT INFORMATION
  Report Type: 
  Country: None (occurrence: None)
  Receive Date: 20060427
  Receipt Date: 20050926
  Transmission Date: 20061013
  Serious: Yes (Other)
  Sender: FDA-Public Use
  Company Number: PHEH2005US10705

PATIENT
  Age: 72 Year
  Sex: Male
  Weight: 57.596 kg

DRUGS (3)
  1. ZOMETA [Suspect]
     Indication: MULTIPLE MYELOMA
     Dosage: 4MG QMO
     Route: 042
     Dates: start: 20050110, end: 20050714
  2. ARANESP [Concomitant]
  3. OXYCODONE HCL [Concomitant]

REACTIONS (15)
  - ACTINOMYCOSIS [None]
  - BIOPSY BONE [None]
  - BONE DISORDER [None]
  - ERYTHEMA [None]
  - FISTULA [None]
  - INFECTION [None]
  - LOCAL SWELLING [None]
  - ORAL SOFT TISSUE DISORDER [None]
  - OSTEOMYELITIS [None]
  - OSTEONECROSIS [None]
  - PAIN [None]
  - SOFT TISSUE INFECTION [None]
  - TOOTH EXTRACTION [None]
  - WOUND DEBRIDEMENT [None]
  - X-RAY ABNORMAL [None]
